FAERS Safety Report 4376859-3 (Version None)
Quarter: 2004Q2

REPORT INFORMATION
  Report Type: 
  Country: None (occurrence: None)
  Receive Date: 20040609
  Receipt Date: 20040308
  Transmission Date: 20050107
  Serious: Yes (Hospitalization)
  Sender: FDA-Public Use
  Company Number: US-SHR-03-005410

PATIENT
  Age: 38 Year
  Sex: Female
  Weight: 78.9 kg

DRUGS (1)
  1. YASMIN [Suspect]
     Indication: MENSTRUAL DISORDER
     Dosage: 1 TABLET, 21D/28D, ORAL
     Route: 048
     Dates: start: 20021201, end: 20030301

REACTIONS (1)
  - SUPERIOR SAGITTAL SINUS THROMBOSIS [None]
